FAERS Safety Report 21811158 (Version 2)
Quarter: 2023Q1

REPORT INFORMATION
  Report Type: Spontaneous
  Country: GB (occurrence: GB)
  Receive Date: 20230103
  Receipt Date: 20230109
  Transmission Date: 20230417
  Serious: Yes (Life-Threatening, Hospitalization, Other)
  Sender: FDA-Public Use
  Company Number: GB-PFIZER INC-PV202200133698

PATIENT
  Age: 8 Decade
  Sex: Male

DRUGS (4)
  1. DOXYCYCLINE [Suspect]
     Active Substance: DOXYCYCLINE
     Indication: Necrotising scleritis
     Dosage: 100 MG, TWO TIMES PER DAY
     Route: 048
  2. PREDNISONE [Suspect]
     Active Substance: PREDNISONE
     Indication: Necrotising scleritis
     Dosage: 60 MG, DAILY WITH TAPER UNTIL CESSATION AFTER 45 DAYS
  3. RANITIDINE [Suspect]
     Active Substance: RANITIDINE
     Indication: Necrotising scleritis
     Dosage: 150 MG, TWO TIMES PER DAY
  4. ASCORBIC ACID [Suspect]
     Active Substance: ASCORBIC ACID
     Indication: Necrotising scleritis
     Dosage: 1000 MG, TWO TIMES PER DAY

REACTIONS (1)
  - Ocular surface squamous neoplasia [Recovered/Resolved]
